FAERS Safety Report 6769401-0 (Version None)
Quarter: 2010Q2

REPORT INFORMATION
  Report Type: 
  Country: None (occurrence: None)
  Receive Date: 20100615
  Receipt Date: 20100611
  Transmission Date: 20101027
  Serious: Yes (Life-Threatening)
  Sender: FDA-Public Use
  Company Number: PHHY2010US38132

PATIENT
  Sex: Male

DRUGS (1)
  1. EXFORGE HCT [Suspect]
     Dosage: UNK

REACTIONS (8)
  - BACK PAIN [None]
  - BURNING SENSATION [None]
  - HEADACHE [None]
  - KIDNEY ENLARGEMENT [None]
  - OCULAR HYPERAEMIA [None]
  - POLLAKIURIA [None]
  - RENAL DISORDER [None]
  - SOMNOLENCE [None]
